FAERS Safety Report 9543591 (Version 2)
Quarter: 2013Q4

REPORT INFORMATION
  Report Type: Spontaneous
  Country: US (occurrence: US)
  Receive Date: 20130923
  Receipt Date: 20131007
  Transmission Date: 20140711
  Serious: Yes (Other)
  Sender: FDA-Public Use
  Company Number: CHPA2013US014453

PATIENT
  Age: 82 Year
  Sex: Male

DRUGS (4)
  1. ASCRIPTIN BUFFERED MAX STRENGTH CAPLETS [Suspect]
     Indication: RESTLESS LEGS SYNDROME
     Dosage: 300 MG, QD
     Route: 048
  2. ASCRIPTIN BUFFERED MAX STRENGTH CAPLETS [Suspect]
     Indication: ARTHRITIS
     Dosage: 500 MG, QD
     Route: 048
  3. ASCRIPTIN BUFFERED MAX STRENGTH CAPLETS [Suspect]
     Indication: PAIN
  4. COUMADIN SODIUM [Concomitant]
     Indication: ATRIAL FIBRILLATION
     Dosage: UNK,UNK

REACTIONS (5)
  - Diabetes mellitus [Unknown]
  - Therapeutic response unexpected [Unknown]
  - Off label use [Unknown]
  - Underdose [Unknown]
  - Incorrect drug administration duration [Unknown]
